FAERS Safety Report 5256981-X (Version None)
Quarter: 2007Q1

REPORT INFORMATION
  Report Type: 
  Country: None (occurrence: None)
  Receive Date: 20070305
  Receipt Date: 20070305
  Transmission Date: 20070707
  Serious: Yes (Hospitalization, Disabling)
  Sender: FDA-Public Use
  Company Number: None

PATIENT
  Sex: Male
  Weight: 67.586 kg

DRUGS (12)
  1. AMIODARONE HCL [Suspect]
     Indication: ATRIAL FIBRILLATION
     Dosage: 200 MG DAILY PO
     Route: 048
     Dates: start: 20050101, end: 20060820
  2. ASPIRIN [Concomitant]
  3. IMDUR [Concomitant]
  4. GLUCOTROL [Concomitant]
  5. COUMADIN [Concomitant]
  6. ZANTAC [Concomitant]
  7. VYTORIN [Concomitant]
  8. PLAVIX [Concomitant]
  9. COREG [Concomitant]
  10. POTASSIUM CHLORIDE [Concomitant]
  11. LASIX [Concomitant]
  12. ALDACTONE [Concomitant]

REACTIONS (3)
  - CARDIAC FAILURE CONGESTIVE [None]
  - RENAL FAILURE [None]
  - THYROIDITIS [None]
